FAERS Safety Report 4503487-9 (Version None)
Quarter: 2004Q4

REPORT INFORMATION
  Report Type: 
  Country: None (occurrence: None)
  Receive Date: 20041112
  Receipt Date: 20041102
  Transmission Date: 20050328
  Serious: Yes (Other)
  Sender: FDA-Public Use
  Company Number: 2004242955US

PATIENT
  Age: 61 Year
  Sex: Female
  Weight: 88.4 kg

DRUGS (6)
  1. CELEBREX [Suspect]
     Indication: LOCALISED OSTEOARTHRITIS
     Dosage: 200 MG , QD, ORAL
     Route: 048
     Dates: start: 20030101, end: 20041001
  2. LKIPITOR (ATORVASTATIN) [Concomitant]
  3. CALCIUM [Concomitant]
  4. FISH OIL (FISH OIL) [Concomitant]
  5. MULTIVITAMINS (PANTHENOL, RETINOL, ERGOCALCIFEROL) [Concomitant]
  6. VITAMIN E [Concomitant]

REACTIONS (2)
  - CARDIAC MURMUR [None]
  - PULMONARY HYPERTENSION [None]
